FAERS Safety Report 14975154 (Version 2)
Quarter: 2018Q2

REPORT INFORMATION
  Report Type: Spontaneous
  Country: GT (occurrence: GT)
  Receive Date: 20180605
  Receipt Date: 20180621
  Transmission Date: 20180711
  Serious: Yes (Other)
  Sender: FDA-Public Use
  Company Number: GT-BAYER-2018-102153

PATIENT
  Age: 33 Year
  Sex: Female

DRUGS (1)
  1. MIRENA [Suspect]
     Active Substance: LEVONORGESTREL
     Indication: CONTRACEPTION
     Dosage: 20 MCG/24HR, CONT
     Route: 015
     Dates: start: 20161121, end: 20180519

REACTIONS (11)
  - Haemorrhage in pregnancy [None]
  - Disease risk factor [None]
  - Uterine haematoma [None]
  - Uterine disorder [None]
  - Pregnancy with contraceptive device [None]
  - Abortion threatened [None]
  - Device dislocation [None]
  - Endometrial atrophy [None]
  - Drug ineffective [None]
  - Uterine enlargement [None]
  - Amenorrhoea [None]

NARRATIVE: CASE EVENT DATE: 20161121
